FAERS Safety Report 9112714 (Version 2)
Quarter: 2013Q2

REPORT INFORMATION
  Report Type: Report from Study
  Country: DE (occurrence: DE)
  Receive Date: 20130211
  Receipt Date: 20130529
  Transmission Date: 20140414
  Serious: Yes (Hospitalization)
  Sender: FDA-Public Use
  Company Number: DE-UCBSA-077584

PATIENT
  Age: 61 Year
  Sex: Female

DRUGS (7)
  1. VIMPAT [Suspect]
     Indication: EPILEPSY
     Dosage: DAILY DOSE: 200 MG
     Dates: start: 20090406, end: 2009
  2. VIMPAT [Suspect]
     Indication: EPILEPSY
     Dosage: 250 MG
     Dates: start: 2009, end: 2009
  3. VIMPAT [Suspect]
     Indication: EPILEPSY
     Route: 048
     Dates: start: 2009, end: 2009
  4. VIMPAT [Suspect]
     Indication: EPILEPSY
     Dosage: DOSE: 250 MG
     Route: 048
     Dates: start: 20091018
  5. LAMOTRIGINE [Concomitant]
     Indication: EPILEPSY
     Dosage: DAILY DOSE:450
     Route: 048
     Dates: end: 2009
  6. LAMOTRIGINE [Concomitant]
     Indication: EPILEPSY
     Dosage: DAILY DOSE :425 MG
     Route: 048
     Dates: start: 2009, end: 2009
  7. LAMOTRIGINE [Concomitant]
     Indication: EPILEPSY
     Route: 048
     Dates: start: 2009

REACTIONS (4)
  - Toxicity to various agents [Recovered/Resolved]
  - Convulsion [Unknown]
  - Drug administration error [Recovered/Resolved]
  - Overdose [Unknown]
